FAERS Safety Report 12698633 (Version 1)
Quarter: 2016Q3

REPORT INFORMATION
  Report Type: Spontaneous
  Country: JP (occurrence: JP)
  Receive Date: 20160830
  Receipt Date: 20160830
  Transmission Date: 20161109
  Serious: Yes (Hospitalization)
  Sender: FDA-Public Use
  Company Number: JP-GLAXOSMITHKLINE-A200904049

PATIENT
  Age: 64 Year
  Sex: Female

DRUGS (7)
  1. LAMOTRIGINE. [Suspect]
     Active Substance: LAMOTRIGINE
     Indication: EPILEPSY
     Dosage: 25 MG, QD
     Route: 048
     Dates: start: 20090213, end: 20090226
  2. LAMOTRIGINE. [Suspect]
     Active Substance: LAMOTRIGINE
     Route: 048
     Dates: start: 20090227, end: 20090305
  3. MYSTAN [Concomitant]
     Active Substance: CLOBAZAM
     Route: 048
     Dates: start: 20090306
  4. MYSTAN [Concomitant]
     Active Substance: CLOBAZAM
     Indication: EPILEPSY
     Route: 048
     Dates: start: 20081218, end: 20090305
  5. GABAPEN [Suspect]
     Active Substance: GABAPENTIN
     Indication: EPILEPSY
     Dosage: 300 MG, TID
     Route: 048
     Dates: start: 200808, end: 20090305
  6. TEGRETOL [Suspect]
     Active Substance: CARBAMAZEPINE
     Route: 048
  7. EXCEGRAN [Suspect]
     Active Substance: ZONISAMIDE
     Route: 048

REACTIONS (7)
  - White blood cell count decreased [Recovered/Resolved]
  - Malaise [Unknown]
  - Ocular hyperaemia [Unknown]
  - Pyrexia [Unknown]
  - Face oedema [Unknown]
  - Breast pain [Unknown]
  - Drug eruption [Recovered/Resolved]

NARRATIVE: CASE EVENT DATE: 20090215
